FAERS Safety Report 7463188-4 (Version None)
Quarter: 2011Q2

REPORT INFORMATION
  Report Type: 
  Country: None (occurrence: None)
  Receive Date: 20110506
  Receipt Date: 20110502
  Transmission Date: 20111010
  Serious: Yes (Hospitalization, Other)
  Sender: FDA-Public Use
  Company Number: US-ROCHE-752534

PATIENT
  Sex: Female
  Weight: 83.5 kg

DRUGS (8)
  1. ADVAIR DISKUS 100/50 [Concomitant]
     Indication: ASTHMA
     Dosage: DAILY AS REQUIRED (PRN)
     Route: 048
     Dates: start: 20090101
  2. BONIVA [Suspect]
     Indication: OSTEOPOROSIS
     Route: 042
     Dates: start: 20070124, end: 20100527
  3. SYNTHROID [Concomitant]
     Indication: HYPOTHYROIDISM
     Route: 048
     Dates: start: 20040101
  4. PRAVASTATIN [Concomitant]
     Dates: start: 20090101
  5. ACTIMMUNE [Concomitant]
     Indication: ASTHMA
     Dosage: DAILY AS REQUIRED (PRN)
     Route: 048
  6. FORTEO [Concomitant]
     Dates: start: 20100801
  7. NEXIUM [Concomitant]
     Dosage: DAILY
     Route: 048
     Dates: start: 20040101
  8. CELEBREX [Concomitant]
     Indication: OSTEOARTHRITIS
     Dosage: AS REQUIRED (PRN)
     Route: 048

REACTIONS (4)
  - PULMONARY EMBOLISM [None]
  - SPINAL COMPRESSION FRACTURE [None]
  - FEMUR FRACTURE [None]
  - FRACTURE [None]
